FAERS Safety Report 19355782 (Version 1)
Quarter: 2021Q2

REPORT INFORMATION
  Report Type: Spontaneous
  Country: US (occurrence: US)
  Receive Date: 20210602
  Receipt Date: 20210602
  Transmission Date: 20210717
  Serious: No
  Sender: FDA-Public Use
  Company Number: US-TEVA-2021-US-1912520

PATIENT
  Sex: Female

DRUGS (4)
  1. ALBUTEROL SULFATE TEVA [Suspect]
     Active Substance: ALBUTEROL SULFATE
     Route: 065
  2. ALBUTEROL SULFATE TEVA [Suspect]
     Active Substance: ALBUTEROL SULFATE
  3. ALBUTEROL SULFATE TEVA [Suspect]
     Active Substance: ALBUTEROL SULFATE
  4. ALBUTEROL SULFATE TEVA [Suspect]
     Active Substance: ALBUTEROL SULFATE

REACTIONS (2)
  - Hypokinesia [Unknown]
  - Dyspnoea [Unknown]
